FAERS Safety Report 10464177 (Version 4)
Quarter: 2015Q1

REPORT INFORMATION
  Report Type: Report from Study
  Country: CA (occurrence: CA)
  Receive Date: 20140919
  Receipt Date: 20150313
  Transmission Date: 20150720
  Serious: Yes (Other)
  Sender: FDA-Public Use
  Company Number: CA-ROCHE-1228762

PATIENT
  Age: 48 Year
  Sex: Male
  Weight: 118 kg

DRUGS (9)
  1. METHOTREXATE [Concomitant]
     Active Substance: METHOTREXATE
  2. GLICLAZIDE [Concomitant]
     Active Substance: GLICLAZIDE
  3. FOLIC ACID. [Concomitant]
     Active Substance: FOLIC ACID
  4. DIOVAN [Concomitant]
     Active Substance: VALSARTAN
  5. ASA [Concomitant]
     Active Substance: ASPIRIN
  6. GLYBURIDE. [Concomitant]
     Active Substance: GLYBURIDE
  7. CRESTOR [Concomitant]
     Active Substance: ROSUVASTATIN CALCIUM
  8. METFORMIN [Concomitant]
     Active Substance: METFORMIN HYDROCHLORIDE
  9. ACTEMRA [Suspect]
     Active Substance: TOCILIZUMAB
     Indication: RHEUMATOID ARTHRITIS
     Route: 042
     Dates: start: 20130508, end: 20140724

REACTIONS (22)
  - Arthralgia [Not Recovered/Not Resolved]
  - Road traffic accident [Unknown]
  - Ear infection [Recovering/Resolving]
  - Limb injury [Unknown]
  - Oral herpes [Recovered/Resolved]
  - Joint injury [Unknown]
  - Infected bites [Recovered/Resolved]
  - Swelling face [Recovered/Resolved]
  - Pain in extremity [Recovering/Resolving]
  - Hyperhidrosis [Not Recovered/Not Resolved]
  - Pneumonia bacterial [Recovered/Resolved]
  - Lung infection [Not Recovered/Not Resolved]
  - Eye swelling [Recovered/Resolved]
  - Sinusitis [Recovered/Resolved]
  - Dyspnoea [Not Recovered/Not Resolved]
  - Rheumatoid arthritis [Not Recovered/Not Resolved]
  - Nasopharyngitis [Not Recovered/Not Resolved]
  - Chills [Not Recovered/Not Resolved]
  - Fall [Unknown]
  - Pain [Recovered/Resolved]
  - Hypotension [Not Recovered/Not Resolved]
  - Arthropod bite [Not Recovered/Not Resolved]

NARRATIVE: CASE EVENT DATE: 20130519
